FAERS Safety Report 4565505-1 (Version None)
Quarter: 2005Q1

REPORT INFORMATION
  Report Type: 
  Country: None (occurrence: None)
  Receive Date: 20050131
  Receipt Date: 20050128
  Transmission Date: 20050727
  Serious: Yes (Hospitalization)
  Sender: FDA-Public Use
  Company Number: 109

PATIENT
  Age: 74 Year
  Sex: Male
  Weight: 75.9 kg

DRUGS (10)
  1. MELPHALAN [Suspect]
     Indication: MULTIPLE MYELOMA
     Route: 042
     Dates: start: 20041206
  2. ARSENIC TRIOXIDE [Suspect]
     Indication: MULTIPLE MYELOMA
     Route: 042
     Dates: start: 20041206
  3. ASCORBIC ACID [Suspect]
     Indication: MULTIPLE MYELOMA
     Route: 042
     Dates: start: 20041206
  4. ENTERIC ASPIRIN [Concomitant]
  5. NEXIUM [Concomitant]
  6. K-DUR 10 [Concomitant]
  7. MULTI-VITAMIN [Concomitant]
  8. IRON SUPPLEMENT [Concomitant]
  9. ARANESP [Concomitant]
  10. ZOMETA [Concomitant]

REACTIONS (1)
  - ELECTROCARDIOGRAM T WAVE INVERSION [None]
